FAERS Safety Report 11091398 (Version 1)
Quarter: 2015Q2

REPORT INFORMATION
  Report Type: Spontaneous
  Country: US (occurrence: None)
  Receive Date: 20150504
  Receipt Date: 20150504
  Transmission Date: 20150821
  Serious: Yes (Disabling)
  Sender: FDA-Public Use
  Company Number: None

PATIENT
  Age: 76 Year
  Sex: Female
  Weight: 111.13 kg

DRUGS (19)
  1. NEXIUM [Concomitant]
     Active Substance: ESOMEPRAZOLE MAGNESIUM
  2. OXYBUTYNIN [Concomitant]
     Active Substance: OXYBUTYNIN
  3. PROBIOTIC [Concomitant]
     Active Substance: PROBIOTICS NOS
  4. MYRBETRIQ [Suspect]
     Active Substance: MIRABEGRON
     Indication: URINARY INCONTINENCE
     Route: 048
     Dates: start: 20150320, end: 20150410
  5. SYNTHROID [Concomitant]
     Active Substance: LEVOTHYROXINE SODIUM
  6. PRAVACHOL [Concomitant]
     Active Substance: PRAVASTATIN SODIUM
  7. CALCIUM CITRATE [Concomitant]
     Active Substance: CALCIUM CITRATE
  8. ASPIRIN. [Concomitant]
     Active Substance: ASPIRIN
  9. COENZYME Q10 [Concomitant]
     Active Substance: UBIDECARENONE
  10. MVI [Concomitant]
     Active Substance: VITAMINS
  11. TOPROL XL [Concomitant]
     Active Substance: METOPROLOL SUCCINATE
  12. BENADRYL [Concomitant]
     Active Substance: DIPHENHYDRAMINE HYDROCHLORIDE
  13. COZAAR [Concomitant]
     Active Substance: LOSARTAN POTASSIUM
  14. ZETIA [Concomitant]
     Active Substance: EZETIMIBE
  15. GLIPIZIDE. [Concomitant]
     Active Substance: GLIPIZIDE
  16. NYSTATIN. [Concomitant]
     Active Substance: NYSTATIN
  17. MAGNESIUM OXIDE. [Concomitant]
     Active Substance: MAGNESIUM OXIDE
  18. SINGULAIR [Concomitant]
     Active Substance: MONTELUKAST SODIUM
  19. QUININE [Concomitant]
     Active Substance: QUININE

REACTIONS (7)
  - Blood pressure increased [None]
  - Urinary tract infection [None]
  - Rash [None]
  - Dysuria [None]
  - Peripheral swelling [None]
  - Hypertension [None]
  - Urinary retention [None]

NARRATIVE: CASE EVENT DATE: 20150409
